FAERS Safety Report 6189338-8 (Version None)
Quarter: 2009Q2

REPORT INFORMATION
  Report Type: 
  Country: None (occurrence: None)
  Receive Date: 20090512
  Receipt Date: 20090423
  Transmission Date: 20091009
  Serious: Yes (Hospitalization, Other)
  Sender: FDA-Public Use
  Company Number: ADE# 09-148DPR

PATIENT
  Age: 73 Year
  Sex: Male

DRUGS (3)
  1. DIGOXIN TABLETS, USP,  STRENGTH UNKNOWN [Suspect]
     Indication: CARDIAC FAILURE CONGESTIVE
     Dates: start: 20070101, end: 20080901
  2. ASPIRIN [Concomitant]
  3. UNKNOWN HIGH BLOOD PRESSURE MEDICATION [Concomitant]

REACTIONS (5)
  - DIZZINESS [None]
  - DYSPNOEA [None]
  - HEART RATE DECREASED [None]
  - OEDEMA PERIPHERAL [None]
  - PHYSICAL EXAMINATION ABNORMAL [None]
